FAERS Safety Report 5928106-6 (Version None)
Quarter: 2008Q4

REPORT INFORMATION
  Report Type: 
  Country: None (occurrence: None)
  Receive Date: 20081020
  Receipt Date: 20081009
  Transmission Date: 20090506
  Serious: Yes (Hospitalization)
  Sender: FDA-Public Use
  Company Number: 100777

PATIENT
  Age: 15 Month
  Sex: Male

DRUGS (9)
  1. ACETAMINOPHEN [Suspect]
  2. OMEPRAZOLE [Suspect]
  3. CISAPRIDE [Suspect]
  4. GENERAL ANESTHESIA [Concomitant]
  5. PROPOFOL [Concomitant]
  6. FENTANYL [Concomitant]
  7. ROCURONIUM BROMIDE [Concomitant]
  8. DESFLURANE [Concomitant]
  9. REMIFENTANIL [Concomitant]

REACTIONS (2)
  - COAGULOPATHY [None]
  - HEPATOTOXICITY [None]
